FAERS Safety Report 6046708-6 (Version None)
Quarter: 2009Q1

REPORT INFORMATION
  Report Type: 
  Country: None (occurrence: None)
  Receive Date: 20090122
  Receipt Date: 20090116
  Transmission Date: 20090719
  Serious: Yes (Other)
  Sender: FDA-Public Use
  Company Number: GB-PFIZER INC-2009153831

PATIENT
  Age: 7 Year
  Sex: Male

DRUGS (6)
  1. EPIRUBICIN HCL [Suspect]
     Dosage: 840 MG, UNK
  2. ETOPOSIDE [Suspect]
     Dosage: 1176 MG, UNK
  3. DACTINOMYCIN [Suspect]
     Indication: RHABDOMYOSARCOMA
     Dosage: 2.52 MG, UNK
  4. IFOSFAMIDE [Suspect]
     Dosage: 18480 MG, UNK
  5. CARBOPLATIN [Concomitant]
     Indication: RHABDOMYOSARCOMA
     Dosage: 840 MG, UNK
  6. VINCRISTINE SULFATE [Concomitant]
     Indication: RHABDOMYOSARCOMA
     Dosage: 10.92 MG, UNK

REACTIONS (2)
  - NEOPLASM MALIGNANT [None]
  - THYROID CANCER [None]
